FAERS Safety Report 9441826 (Version 2)
Quarter: 2013Q3

REPORT INFORMATION
  Report Type: Spontaneous
  Country: US (occurrence: US)
  Receive Date: 20130806
  Receipt Date: 20130904
  Transmission Date: 20140515
  Serious: No
  Sender: FDA-Public Use
  Company Number: US-PFIZER INC-2013225468

PATIENT
  Age: 54 Year
  Sex: Female

DRUGS (7)
  1. SUTENT [Suspect]
     Indication: RENAL CANCER
     Dosage: 50 MG, CYCLIC (QD X 4WKS, 2 WKS OFF)
     Route: 048
     Dates: start: 20130613
  2. SUTENT [Suspect]
     Indication: RENAL CANCER
  3. AMBIEN [Concomitant]
     Dosage: UNK
  4. HYDROCODONE [Concomitant]
     Dosage: UNK
  5. NEXIUM [Concomitant]
     Dosage: UNK
  6. LANTUS [Concomitant]
     Dosage: UNK
  7. VIIBRYD [Concomitant]
     Dosage: UNK

REACTIONS (1)
  - Fatigue [Unknown]
